FAERS Safety Report 6264678-2 (Version None)
Quarter: 2009Q3

REPORT INFORMATION
  Report Type: 
  Country: None (occurrence: None)
  Receive Date: 20090710
  Receipt Date: 20090703
  Transmission Date: 20100115
  Serious: Yes (Death, Life-Threatening, Hospitalization)
  Sender: FDA-Public Use
  Company Number: PT-JNJFOC-20090405321

PATIENT
  Sex: Male

DRUGS (2)
  1. TMC125 [Suspect]
     Route: 048
     Dates: end: 20071213
  2. TMC125 [Suspect]
     Indication: HIV INFECTION
     Route: 048
     Dates: end: 20071213

REACTIONS (2)
  - MYOCARDIAL INFARCTION [None]
  - TOXIC EPIDERMAL NECROLYSIS [None]
